FAERS Safety Report 25051630 (Version 1)
Quarter: 2025Q1

REPORT INFORMATION
  Report Type: Spontaneous
  Country: FR (occurrence: FR)
  Receive Date: 20250307
  Receipt Date: 20250307
  Transmission Date: 20250409
  Serious: Yes (Other)
  Sender: TEVA
  Company Number: FR-TEVA-VS-3303034

PATIENT
  Age: 68 Year
  Sex: Male

DRUGS (3)
  1. ALBUTEROL SULFATE [Suspect]
     Active Substance: ALBUTEROL SULFATE
     Indication: Asthma
     Route: 065
  2. CORDARONE [Suspect]
     Active Substance: AMIODARONE HYDROCHLORIDE
     Indication: Product used for unknown indication
     Route: 065
     Dates: end: 20241105
  3. BISOPROLOL FUMARATE [Suspect]
     Active Substance: BISOPROLOL FUMARATE
     Indication: Myocardial ischaemia
     Route: 065
     Dates: start: 20241105

REACTIONS (7)
  - Toxicity to various agents [Recovered/Resolved]
  - Tachycardia [Unknown]
  - Expired product administered [Unknown]
  - Myocardial ischaemia [Unknown]
  - Atrial fibrillation [Unknown]
  - Hypertension [Unknown]
  - N-terminal prohormone brain natriuretic peptide increased [Unknown]
